FAERS Safety Report 7175857-4 (Version None)
Quarter: 2010Q4

REPORT INFORMATION
  Report Type: 
  Country: None (occurrence: None)
  Receive Date: 20101220
  Receipt Date: 20100415
  Transmission Date: 20110411
  Serious: Yes (Hospitalization)
  Sender: FDA-Public Use
  Company Number: US-AMGEN-QUU404008

PATIENT

DRUGS (4)
  1. ENBREL [Suspect]
     Indication: PSORIASIS
     Dosage: 50 MG, QWK
     Route: 058
     Dates: start: 20090114, end: 20100406
  2. OXYCODONE HYDROCHLORIDE [Concomitant]
     Dosage: UNK UNK, UNK
     Dates: start: 20080904
  3. TRIMETHOPRIM + SULFAMETHOXAZOLE [Concomitant]
     Dosage: UNK UNK, UNK
     Dates: start: 20090430, end: 20090511
  4. EFALIZUMAB [Concomitant]
     Dosage: UNK UNK, UNK
     Dates: start: 20070731, end: 20080807

REACTIONS (1)
  - NEPHROLITHIASIS [None]
